FAERS Safety Report 10300846 (Version 1)
Quarter: 2014Q3

REPORT INFORMATION
  Report Type: Report from Study
  Country: CA (occurrence: CA)
  Receive Date: 20140714
  Receipt Date: 20140714
  Transmission Date: 20150326
  Serious: Yes (Death, Hospitalization)
  Sender: FDA-Public Use
  Company Number: CA-BRISTOL-MYERS SQUIBB COMPANY-21179981

PATIENT
  Age: 67 Year
  Sex: Female

DRUGS (16)
  1. ACTONEL [Concomitant]
     Active Substance: RISEDRONATE SODIUM
  2. VITAMIN D [Concomitant]
     Active Substance: CHOLECALCIFEROL
  3. OMEPRAZOLE. [Concomitant]
     Active Substance: OMEPRAZOLE
  4. PREDNISONE. [Concomitant]
     Active Substance: PREDNISONE
  5. ACETAMINOPHEN. [Concomitant]
     Active Substance: ACETAMINOPHEN
  6. SALBUTAMOL [Concomitant]
     Active Substance: ALBUTEROL
  7. ATIVAN [Concomitant]
     Active Substance: LORAZEPAM
  8. CALCIUM [Concomitant]
     Active Substance: CALCIUM
  9. ENALAPRIL [Concomitant]
     Active Substance: ENALAPRIL
  10. SYNTHROID [Concomitant]
     Active Substance: LEVOTHYROXINE SODIUM
  11. AMLODIPINE [Concomitant]
     Active Substance: AMLODIPINE BESYLATE
  12. ORENCIA [Suspect]
     Active Substance: ABATACEPT
     Indication: RHEUMATOID ARTHRITIS
     Dosage: LAST DOSE: 23-JUN-2014
     Route: 042
     Dates: start: 20100921
  13. ASPIRIN. [Concomitant]
     Active Substance: ASPIRIN
  14. HYDROCHLOROTHIAZIDE. [Concomitant]
     Active Substance: HYDROCHLOROTHIAZIDE
  15. CRESTOR [Concomitant]
     Active Substance: ROSUVASTATIN CALCIUM
  16. HYDROXYCHLOROQUINE [Concomitant]
     Active Substance: HYDROXYCHLOROQUINE

REACTIONS (2)
  - Cardiac arrest [Fatal]
  - Pulmonary oedema [Unknown]
